FAERS Safety Report 9495403 (Version 1)
Quarter: 2013Q3

REPORT INFORMATION
  Report Type: Spontaneous
  Country: CH (occurrence: CH)
  Receive Date: 20130903
  Receipt Date: 20130903
  Transmission Date: 20140515
  Serious: Yes (Other)
  Sender: FDA-Public Use
  Company Number: PHHY2013CH094737

PATIENT
  Age: 36 Year
  Sex: Female

DRUGS (3)
  1. GILENYA [Suspect]
     Indication: MULTIPLE SCLEROSIS
     Route: 048
     Dates: start: 20130624
  2. ATARAX (HYDROXYZINE) [Suspect]
     Indication: PRURITUS
  3. SIRDALUD [Concomitant]

REACTIONS (2)
  - Optic ischaemic neuropathy [Unknown]
  - Visual acuity reduced [Not Recovered/Not Resolved]
